FAERS Safety Report 4657699-4 (Version None)
Quarter: 2005Q2

REPORT INFORMATION
  Report Type: 
  Country: None (occurrence: None)
  Receive Date: 20050412
  Receipt Date: 20041208
  Transmission Date: 20051028
  Serious: Yes (Other)
  Sender: FDA-Public Use
  Company Number: 200421141BWH

PATIENT
  Age: 73 Year

DRUGS (20)
  1. CIPRO IV [Suspect]
     Indication: CELLULITIS
     Dosage: INTRAVENOUS
     Route: 042
     Dates: start: 20040916, end: 20040919
  2. CIPRO IV [Suspect]
     Indication: DIABETIC DERMOPATHY
     Dosage: INTRAVENOUS
     Route: 042
     Dates: start: 20040916, end: 20040919
  3. CIPRO IV [Suspect]
     Indication: OEDEMA PERIPHERAL
     Dosage: INTRAVENOUS
     Route: 042
     Dates: start: 20040916, end: 20040919
  4. CIPROFLOXACIN [Suspect]
     Indication: CELLULITIS
     Dosage: 500 MG, ORAL
     Route: 048
     Dates: start: 20040919
  5. CIPROFLOXACIN [Suspect]
     Indication: DIABETIC DERMOPATHY
     Dosage: 500 MG, ORAL
     Route: 048
     Dates: start: 20040919
  6. CIPROFLOXACIN [Suspect]
     Indication: OEDEMA PERIPHERAL
     Dosage: 500 MG, ORAL
     Route: 048
     Dates: start: 20040919
  7. CLINDAMYCIN [Suspect]
     Indication: CELLULITIS
     Dosage: INTRAVENOUS
     Route: 042
  8. CLINDAMYCIN [Suspect]
     Indication: DIABETIC DERMOPATHY
     Dosage: INTRAVENOUS
     Route: 042
  9. CLINDAMYCIN [Suspect]
     Indication: OEDEMA PERIPHERAL
     Dosage: INTRAVENOUS
     Route: 042
  10. CLINDAMYCIN (CLINDAMYCIN) [Suspect]
     Indication: CELLULITIS
     Dosage: 150 MG, TOTAL DAILY, ORAL
     Route: 048
  11. CLINDAMYCIN (CLINDAMYCIN) [Suspect]
     Indication: DIABETIC DERMOPATHY
     Dosage: 150 MG, TOTAL DAILY, ORAL
     Route: 048
  12. CLINDAMYCIN (CLINDAMYCIN) [Suspect]
     Indication: OEDEMA PERIPHERAL
     Dosage: 150 MG, TOTAL DAILY, ORAL
     Route: 048
  13. VITAMIN A [Concomitant]
  14. VITAMIN B COMPLEX CAP [Concomitant]
  15. VIT C TAB [Concomitant]
  16. VITAMIN D [Concomitant]
  17. VITAMIN E [Concomitant]
  18. SELENIUM TRACE METAL ADDITIVE [Concomitant]
  19. COPPER [Concomitant]
  20. CHROMIUM [Concomitant]

REACTIONS (14)
  - BLISTER [None]
  - CHEST PAIN [None]
  - DIABETES MELLITUS [None]
  - EAR DISCOMFORT [None]
  - ERYTHEMA [None]
  - HEADACHE [None]
  - OEDEMA PERIPHERAL [None]
  - PNEUMONIA [None]
  - PRODUCTIVE COUGH [None]
  - PRURITUS GENERALISED [None]
  - PULMONARY OEDEMA [None]
  - RASH VESICULAR [None]
  - RHINORRHOEA [None]
  - THROAT IRRITATION [None]
